FAERS Safety Report 4745230-4 (Version None)
Quarter: 2005Q3

REPORT INFORMATION
  Report Type: 
  Country: None (occurrence: None)
  Receive Date: 20050812
  Receipt Date: 20050802
  Transmission Date: 20060218
  Serious: Yes (Hospitalization)
  Sender: FDA-Public Use
  Company Number: 204782

PATIENT
  Age: 42 Year
  Sex: Female

DRUGS (5)
  1. HERCEPTIN [Suspect]
     Indication: BREAST CANCER
     Dosage: 260 MG SINGLE INTRAVENOUS
     Route: 042
     Dates: start: 20040204, end: 20040204
  2. TAXOTERE [Suspect]
     Indication: BREAST CANCER
     Dosage: 160 MG SINGLE INTRAVENOUS
     Route: 042
     Dates: start: 20040205, end: 20040205
  3. DECADRON [Concomitant]
  4. SOLU-CORTEF [Concomitant]
  5. BETAMETHASONE [Concomitant]

REACTIONS (11)
  - ANOREXIA [None]
  - BONE PAIN [None]
  - C-REACTIVE PROTEIN INCREASED [None]
  - HAEMOGLOBIN DECREASED [None]
  - INFLUENZA LIKE ILLNESS [None]
  - MALAISE [None]
  - MYALGIA [None]
  - NEUTROPENIA [None]
  - PAIN [None]
  - PYREXIA [None]
  - WHITE BLOOD CELL COUNT DECREASED [None]
